FAERS Safety Report 12920571 (Version 1)
Quarter: 2016Q4

REPORT INFORMATION
  Report Type: Spontaneous
  Country: US (occurrence: US)
  Receive Date: 20161106
  Receipt Date: 20161106
  Transmission Date: 20170207
  Serious: Yes (Other)
  Sender: FDA-Public Use
  Company Number: None

PATIENT
  Age: 63 Year
  Sex: Female
  Weight: 101.7 kg

DRUGS (24)
  1. TRULICITY [Suspect]
     Active Substance: DULAGLUTIDE
     Indication: WEIGHT INCREASED
     Dosage: ?          QUANTITY:6 INJECTION(S);OTHER FREQUENCY:ONCE A WEEK;?
     Route: 058
     Dates: start: 20161102, end: 20161105
  2. PREMARIN [Concomitant]
     Active Substance: ESTROGENS, CONJUGATED
  3. FOLIC ACID. [Concomitant]
     Active Substance: FOLIC ACID
  4. NITROGLYCERIN SPRAY [Concomitant]
     Active Substance: NITROGLYCERIN
  5. WELLBUTRIN [Concomitant]
     Active Substance: BUPROPION HYDROCHLORIDE
  6. LAMICTAL [Concomitant]
     Active Substance: LAMOTRIGINE
  7. PRISTIQ EXTENDED-RELEASE [Concomitant]
     Active Substance: DESVENLAFAXINE SUCCINATE
  8. ASPIRIN. [Concomitant]
     Active Substance: ASPIRIN
  9. RANEXA [Concomitant]
     Active Substance: RANOLAZINE
  10. MUCINEX [Concomitant]
     Active Substance: GUAIFENESIN
  11. CO-Q 10 [Concomitant]
  12. LOVASTATIN. [Concomitant]
     Active Substance: LOVASTATIN
  13. MICARDIS [Concomitant]
     Active Substance: TELMISARTAN
  14. VITAMIN E [Concomitant]
     Active Substance: .ALPHA.-TOCOPHEROL
  15. SUDAFED NON-DROWSY [Concomitant]
  16. SYNTHROID [Concomitant]
     Active Substance: LEVOTHYROXINE SODIUM
  17. VITAMIN B COMPLEX WITH PROBIOTICS [Concomitant]
  18. ACCOLATE [Concomitant]
     Active Substance: ZAFIRLUKAST
  19. VITAMIN D3 [Concomitant]
     Active Substance: CHOLECALCIFEROL
  20. TRAZODONE [Concomitant]
     Active Substance: TRAZODONE HYDROCHLORIDE
  21. VITACOST HAIR SKIN AND NAILS [Concomitant]
  22. PROAIR HFA [Concomitant]
     Active Substance: ALBUTEROL SULFATE
  23. METFORMIN HYDROCHLORIDE. [Concomitant]
     Active Substance: METFORMIN HYDROCHLORIDE
  24. IBUPROFEN. [Concomitant]
     Active Substance: IBUPROFEN

REACTIONS (8)
  - Nausea [None]
  - Flatulence [None]
  - Gastrooesophageal reflux disease [None]
  - Retching [None]
  - Eructation [None]
  - Heart rate increased [None]
  - Impaired driving ability [None]
  - Dizziness [None]

NARRATIVE: CASE EVENT DATE: 20161102
